FAERS Safety Report 13212097 (Version 1)
Quarter: 2017Q1

REPORT INFORMATION
  Report Type: Spontaneous
  Country: US (occurrence: US)
  Receive Date: 20170210
  Receipt Date: 20170210
  Transmission Date: 20170428
  Serious: Yes (Hospitalization)
  Sender: FDA-Public Use
  Company Number: None

PATIENT
  Age: 53 Year
  Sex: Male
  Weight: 93 kg

DRUGS (1)
  1. NATALIZUMAB 300MG BIOGEN INC, INC [Suspect]
     Active Substance: NATALIZUMAB
     Indication: ACUTE GRAFT VERSUS HOST DISEASE
     Route: 042
     Dates: start: 20170119, end: 20170203

REACTIONS (2)
  - Cystitis viral [None]
  - BK virus infection [None]

NARRATIVE: CASE EVENT DATE: 20170209
